FAERS Safety Report 10149253 (Version 2)
Quarter: 2014Q2

REPORT INFORMATION
  Report Type: Spontaneous
  Country: FI (occurrence: FI)
  Receive Date: 20140502
  Receipt Date: 20140502
  Transmission Date: 20141212
  Serious: Yes (Hospitalization, Other)
  Sender: FDA-Public Use
  Company Number: FI-ROCHE-1382609

PATIENT
  Age: 72 Year
  Sex: Male

DRUGS (15)
  1. MABTHERA [Suspect]
     Indication: GRANULOMATOSIS WITH POLYANGIITIS
     Route: 065
     Dates: start: 20131121
  2. MABTHERA [Suspect]
     Route: 065
     Dates: start: 20131129
  3. MABTHERA [Suspect]
     Route: 065
     Dates: start: 20131205
  4. MABTHERA [Suspect]
     Route: 065
     Dates: start: 20131212
  5. SOMAC [Concomitant]
     Route: 065
  6. LIPITOR [Concomitant]
     Route: 065
  7. ALENDRONAT [Concomitant]
     Route: 065
  8. CALCICHEW D3 FORTE [Concomitant]
     Route: 065
  9. COTRIM [Concomitant]
     Route: 065
  10. GALVUS [Concomitant]
     Route: 065
  11. LOSATRIX COMP [Concomitant]
     Route: 065
  12. PLENDIL [Concomitant]
     Route: 065
  13. PREDNISOLON [Concomitant]
     Route: 065
  14. PRIMASPAN [Concomitant]
     Route: 065
  15. PROTAPHAN [Concomitant]
     Route: 065

REACTIONS (8)
  - Intestinal perforation [Unknown]
  - Sepsis [Recovered/Resolved]
  - Duodenal perforation [Recovered/Resolved]
  - Retroperitoneal abscess [Unknown]
  - Gastrointestinal fistula [Unknown]
  - Abdominal pain [Unknown]
  - Pancreatitis [Unknown]
  - Duodenal stenosis [Unknown]
